FAERS Safety Report 8244735-1 (Version None)
Quarter: 2012Q1

REPORT INFORMATION
  Report Type: 
  Country: None (occurrence: None)
  Receive Date: 20120329
  Receipt Date: 20110330
  Transmission Date: 20120608
  Serious: No
  Sender: FDA-Public Use
  Company Number: US-MYLANLABS-2011S1004336

PATIENT
  Age: 38 Year
  Sex: Female

DRUGS (7)
  1. FENTANYL-100 [Suspect]
     Indication: INTERVERTEBRAL DISC PROTRUSION
     Dosage: CHANGED Q72H.
     Route: 062
     Dates: start: 20090101
  2. XANAX [Concomitant]
  3. TIZANIDINE HCL [Concomitant]
  4. FENTANYL-100 [Suspect]
     Indication: INTERVERTEBRAL DISC DISORDER
     Dosage: CHANGED Q72H.
     Route: 062
     Dates: start: 20090101
  5. NORCO [Concomitant]
  6. FENTANYL-100 [Suspect]
     Indication: PAIN
     Dosage: CHANGED Q72H.
     Route: 062
     Dates: start: 20090101
  7. FENTANYL-100 [Suspect]
     Indication: INTERVERTEBRAL DISC DEGENERATION
     Dosage: CHANGED Q72H.
     Route: 062
     Dates: start: 20090101

REACTIONS (3)
  - DRUG EFFECT DECREASED [None]
  - WITHDRAWAL SYNDROME [None]
  - PAIN [None]
